FAERS Safety Report 9924010 (Version 1)
Quarter: 2014Q1

REPORT INFORMATION
  Report Type: Spontaneous
  Country: GB (occurrence: GB)
  Receive Date: 20140225
  Receipt Date: 20140225
  Transmission Date: 20141002
  Serious: Yes (Hospitalization, Other)
  Sender: FDA-Public Use
  Company Number: GB-B.I. PHARMACEUTICALS,INC./RIDGEFIELD-2014-BI-07952UK

PATIENT
  Sex: Male

DRUGS (3)
  1. PRADAXA [Suspect]
     Indication: CEREBROVASCULAR ACCIDENT PROPHYLAXIS
     Dosage: 220 MG
     Route: 065
  2. PRADAXA [Suspect]
     Indication: ATRIAL FIBRILLATION
  3. ANTI-PLATELETS [Concomitant]
     Route: 065

REACTIONS (1)
  - Ischaemic stroke [Not Recovered/Not Resolved]
